FAERS Safety Report 26027012 (Version 1)
Quarter: 2025Q4

REPORT INFORMATION
  Report Type: Report from Study
  Country: US (occurrence: US)
  Receive Date: 20251111
  Receipt Date: 20251111
  Transmission Date: 20260117
  Serious: No
  Sender: ACADIA PHARMACEUTICALS
  Company Number: US-ACADIA PHARMACEUTICALS INC.-ACA-2025-PIM-012037

PATIENT
  Sex: Male

DRUGS (20)
  1. NUPLAZID [Suspect]
     Active Substance: PIMAVANSERIN TARTRATE
     Indication: Parkinson^s disease
     Dosage: 34 MILLIGRAM, QD
     Route: 048
  2. SUMATRIPTAN SUCCINATE [Concomitant]
     Active Substance: SUMATRIPTAN SUCCINATE
  3. VITAMIN B12 [Concomitant]
     Active Substance: CYANOCOBALAMIN
  4. ELIQUIS [Concomitant]
     Active Substance: APIXABAN
  5. ZYRTEC [Concomitant]
     Active Substance: CETIRIZINE HYDROCHLORIDE
  6. SANDOSTATIN LAR DEPOT [Concomitant]
     Active Substance: OCTREOTIDE ACETATE
     Dosage: VIAL
  7. RASAGILINE MESYLATE [Concomitant]
     Active Substance: RASAGILINE MESYLATE
  8. DOCUSATE SODIUM [Concomitant]
     Active Substance: DOCUSATE SODIUM
  9. QUETIAPINE FUMARATE [Concomitant]
     Active Substance: QUETIAPINE FUMARATE
  10. MONTELUKAST SODIUM [Concomitant]
     Active Substance: MONTELUKAST SODIUM
  11. MIDODRINE HYDROCHLORIDE [Concomitant]
     Active Substance: MIDODRINE HYDROCHLORIDE
  12. TRAZODONE HCL [Concomitant]
     Active Substance: TRAZODONE HYDROCHLORIDE
  13. VITAMIN D3 [Concomitant]
     Active Substance: CHOLECALCIFEROL
  14. TADALAFIL [Concomitant]
     Active Substance: TADALAFIL
  15. DONEPEZIL HYDROCHLORIDE [Concomitant]
     Active Substance: DONEPEZIL HYDROCHLORIDE
  16. SIMVASTATIN [Concomitant]
     Active Substance: SIMVASTATIN
  17. CLONAZEPAM [Concomitant]
     Active Substance: CLONAZEPAM
  18. MELATONIN [Concomitant]
     Active Substance: MELATONIN
  19. RYTARY [Concomitant]
     Active Substance: CARBIDOPA\LEVODOPA
  20. TRULANCE [Concomitant]
     Active Substance: PLECANATIDE

REACTIONS (1)
  - Constipation [Unknown]
